FAERS Safety Report 10154236 (Version 1)
Quarter: 2014Q2

REPORT INFORMATION
  Report Type: Spontaneous
  Country: JP (occurrence: None)
  Receive Date: 20140502
  Receipt Date: 20140502
  Transmission Date: 20141212
  Serious: Yes (Hospitalization)
  Sender: FDA-Public Use
  Company Number: B0988800A

PATIENT
  Sex: Female
  Weight: 2.72 kg

DRUGS (4)
  1. PAROXETINE HYDROCHLORIDE TABLET (PAROXETINE HYDROCHLORIDE) [Suspect]
     Indication: PRODUCT USED FOR UNKNOWN INDICATION
     Route: 064
     Dates: end: 200710
  2. PAROXETINE HYDROCHLORIDE TABLET (PAROXETINE HYDROCHLORIDE) [Suspect]
     Indication: PRODUCT USED FOR UNKNOWN INDICATION
     Route: 064
     Dates: start: 200710, end: 20080617
  3. ETHYL LOFLAZEPATE [Concomitant]
  4. ETIZOLAM [Concomitant]

REACTIONS (3)
  - Respiratory disorder [None]
  - Withdrawal syndrome [None]
  - Maternal drugs affecting foetus [None]
